FAERS Safety Report 12231330 (Version 1)
Quarter: 2016Q2

REPORT INFORMATION
  Report Type: Spontaneous
  Country: CO (occurrence: CO)
  Receive Date: 20160401
  Receipt Date: 20160401
  Transmission Date: 20160815
  Serious: Yes (Hospitalization)
  Sender: FDA-Public Use
  Company Number: CO-ELI_LILLY_AND_COMPANY-CO201603008689

PATIENT
  Age: 59 Year
  Sex: Female

DRUGS (1)
  1. HUMALOG [Suspect]
     Active Substance: INSULIN LISPRO
     Indication: DIABETES MELLITUS
     Dosage: 9 IU, PRN
     Route: 058
     Dates: start: 2012

REACTIONS (6)
  - Blood urine present [Unknown]
  - Gastritis [Unknown]
  - Blood glucose increased [Not Recovered/Not Resolved]
  - Depressed mood [Unknown]
  - Dysuria [Unknown]
  - Hypophagia [Unknown]

NARRATIVE: CASE EVENT DATE: 20160301
